FAERS Safety Report 21722205 (Version 5)
Quarter: 2023Q1

REPORT INFORMATION
  Report Type: Spontaneous
  Country: US (occurrence: US)
  Receive Date: 20221213
  Receipt Date: 20230203
  Transmission Date: 20230417
  Serious: Yes (Hospitalization, Other)
  Sender: FDA-Public Use
  Company Number: US-BRISTOL-MYERS SQUIBB COMPANY-2022-152500

PATIENT
  Age: 83 Year
  Sex: Female

DRUGS (14)
  1. THALOMID [Suspect]
     Active Substance: THALIDOMIDE
     Indication: Gastrointestinal angiodysplasia
     Dosage: BID
     Route: 048
     Dates: start: 20220720
  2. THALOMID [Suspect]
     Active Substance: THALIDOMIDE
     Indication: Iron deficiency anaemia
     Dosage: EVERY NIGHT
     Route: 048
     Dates: end: 20220725
  3. TYLENOL [Concomitant]
     Active Substance: ACETAMINOPHEN
     Indication: Pain
     Route: 048
  4. VITAMIN D3 [Concomitant]
     Active Substance: CHOLECALCIFEROL
     Indication: Product used for unknown indication
     Dosage: 10 MCG (400 UNIT) EVERY DAY
     Route: 048
     Dates: start: 20201213
  5. COLCRYS [Concomitant]
     Active Substance: COLCHICINE
     Indication: Pain
     Dosage: 1 TAB TWICE A DAY FOR 4 DAYS, THEN ONCE A DAY FOR 4 DAYS, THEN STOP.?PATIENT NOT TAKING: NO SIG REPO
     Route: 048
     Dates: start: 20220712, end: 20220805
  6. VITAMIN B12 [Concomitant]
     Active Substance: CYANOCOBALAMIN
     Indication: Product used for unknown indication
     Route: 048
  7. CYMBALTA [Concomitant]
     Active Substance: DULOXETINE HYDROCHLORIDE
     Indication: Product used for unknown indication
     Dosage: 2 CAPSULES ?DELAYED RELEASE(E.C.)
     Route: 048
  8. FERROUS SULFATE [Concomitant]
     Active Substance: FERROUS SULFATE
     Indication: Product used for unknown indication
     Dosage: 65 MG IRON
     Route: 048
  9. NEURONTIN [Concomitant]
     Active Substance: GABAPENTIN
     Indication: Product used for unknown indication
     Dosage: TAKE 1 CAPSULE IN THE MORNING AND 1 CAPSULE BEFORE BEDTIME BY MOUTH
     Route: 048
     Dates: start: 20220712, end: 20221114
  10. AMARYL [Concomitant]
     Active Substance: GLIMEPIRIDE
     Indication: Product used for unknown indication
     Route: 048
     Dates: start: 20220607
  11. MAGNESIUM OXIDE [Concomitant]
     Active Substance: MAGNESIUM OXIDE
     Indication: Product used for unknown indication
     Route: 048
     Dates: start: 20220511, end: 20221212
  12. GLUCOPHAGE [Concomitant]
     Active Substance: METFORMIN HYDROCHLORIDE
     Indication: Product used for unknown indication
     Dosage: WITH MEALS
     Route: 048
     Dates: start: 20211011, end: 20220929
  13. PROTONIX [Concomitant]
     Active Substance: PANTOPRAZOLE SODIUM
     Indication: Product used for unknown indication
     Dosage: DELAYED RELEASE (E.C.) ?IN THE MORNING AND IN THE EVENING WITH MEALS.
     Route: 048
     Dates: start: 20220607, end: 20220913
  14. MINERALS\VITAMINS [Concomitant]
     Active Substance: MINERALS\VITAMINS
     Indication: Product used for unknown indication
     Dosage: 1 TABLET
     Route: 048
     Dates: end: 20220902

REACTIONS (7)
  - COVID-19 [Recovering/Resolving]
  - Gastrointestinal haemorrhage [Recovering/Resolving]
  - Blood loss anaemia [Recovering/Resolving]
  - Acute respiratory failure [Recovering/Resolving]
  - Off label use [Unknown]
  - Gait disturbance [Unknown]
  - Hypersomnia [Unknown]

NARRATIVE: CASE EVENT DATE: 20220701
